FAERS Safety Report 6087516-X (Version None)
Quarter: 2009Q1

REPORT INFORMATION
  Report Type: 
  Country: None (occurrence: None)
  Receive Date: 20090223
  Receipt Date: 20090210
  Transmission Date: 20090719
  Serious: Yes (Hospitalization)
  Sender: FDA-Public Use
  Company Number: GB-ELI_LILLY_AND_COMPANY-GB200902002057

PATIENT
  Age: 20 Year
  Sex: Female

DRUGS (6)
  1. CYMBALTA [Suspect]
     Dosage: UNK, UNKNOWN
     Route: 065
  2. COMBIVIR [Concomitant]
     Dosage: UNK, UNKNOWN
     Route: 065
     Dates: start: 20090123
  3. FERROUS SULFATE TAB [Concomitant]
     Dosage: UNK, UNKNOWN
     Route: 065
  4. KALETRA [Concomitant]
     Dosage: UNK, UNKNOWN
     Route: 065
  5. PIPOTIAZINE PALMITATE [Concomitant]
     Dosage: UNK, UNKNOWN
     Route: 065
  6. ZOPICLONE [Concomitant]
     Dosage: UNK, UNKNOWN
     Route: 065

REACTIONS (9)
  - FEELING HOT [None]
  - HYPERREFLEXIA [None]
  - HYPERTONIA [None]
  - HYPOKINESIA [None]
  - MENTAL IMPAIRMENT [None]
  - MYOCLONUS [None]
  - RESTLESSNESS [None]
  - SPEECH DISORDER [None]
  - TREMOR [None]
